FAERS Safety Report 11178463 (Version 2)
Quarter: 2015Q4

REPORT INFORMATION
  Report Type: Spontaneous
  Country: US (occurrence: US)
  Receive Date: 20150610
  Receipt Date: 20151123
  Transmission Date: 20160304
  Serious: Yes (Hospitalization, Other)
  Sender: FDA-Public Use
  Company Number: US-CELGENE-USA-2015056119

PATIENT
  Age: 76 Year
  Sex: Male

DRUGS (6)
  1. REVLIMID [Suspect]
     Active Substance: LENALIDOMIDE
     Indication: PLASMA CELL MYELOMA
     Route: 048
     Dates: start: 20120320
  2. COUMADIN [Concomitant]
     Active Substance: WARFARIN SODIUM
     Indication: THROMBOSIS PROPHYLAXIS
     Route: 048
     Dates: start: 20120606, end: 20150722
  3. COUMADIN [Concomitant]
     Active Substance: WARFARIN SODIUM
     Dosage: 81 MILLIGRAM
     Route: 065
  4. REVLIMID [Suspect]
     Active Substance: LENALIDOMIDE
     Route: 048
     Dates: start: 201206, end: 20150722
  5. ASPIRIN. [Concomitant]
     Active Substance: ASPIRIN
     Indication: CARDIOVASCULAR EVENT PROPHYLAXIS
     Route: 065
     Dates: start: 20110304, end: 20150722
  6. DEXAMETHASONE. [Concomitant]
     Active Substance: DEXAMETHASONE
     Indication: PRODUCT USED FOR UNKNOWN INDICATION
     Dosage: 40.5 MILLIGRAM
     Route: 048
     Dates: start: 20110314, end: 20130116

REACTIONS (3)
  - Psoriasis [Unknown]
  - Deep vein thrombosis [Unknown]
  - Deep vein thrombosis [Recovered/Resolved with Sequelae]

NARRATIVE: CASE EVENT DATE: 20130129
